FAERS Safety Report 8982497 (Version 1)
Quarter: 2012Q4

REPORT INFORMATION
  Report Type: 
  Country: US (occurrence: US)
  Receive Date: 20121212
  Receipt Date: 20121212
  Transmission Date: 20130627
  Serious: Yes (Death, Other)
  Sender: FDA-Public Use
  Company Number: US-ASTELLAS-1116445

PATIENT
  Sex: Female

DRUGS (4)
  1. TARCEVA [Suspect]
     Indication: RENAL CANCER
  2. TARCEVA [Suspect]
     Indication: MALIGNANT RESPIRATORY TRACT NEOPLASM
  3. TARCEVA [Suspect]
     Indication: BRAIN NEOPLASM MALIGNANT
  4. TARCEVA [Suspect]
     Indication: MALIGNANT NEOPLASM OF SPINAL CORD

REACTIONS (4)
  - Death [Fatal]
  - Loss of consciousness [Unknown]
  - Pain [Unknown]
  - Metastases to spine [Unknown]
